FAERS Safety Report 8170746-0 (Version None)
Quarter: 2012Q1

REPORT INFORMATION
  Report Type: 
  Country: None (occurrence: None)
  Receive Date: 20120104
  Receipt Date: 20111116
  Transmission Date: 20120608
  Serious: No
  Sender: FDA-Public Use
  Company Number: 2011HGS-002822

PATIENT
  Age: 50 Year
  Sex: Female
  Weight: 117.9352 kg

DRUGS (11)
  1. PLAQUENIL [Concomitant]
  2. ZANTAC [Concomitant]
  3. SOMA [Concomitant]
  4. ABILIFY [Concomitant]
  5. BENLYSTA [Suspect]
     Indication: SYSTEMIC LUPUS ERYTHEMATOSUS
     Dosage: 1 IN 28 D, INTRAVENOUS DRIP
     Route: 041
     Dates: start: 20111109, end: 20111109
  6. METHOTREXATE [Concomitant]
  7. LYRICA [Concomitant]
  8. TRAZODONE HCL [Concomitant]
  9. OXYCODONE HCL [Concomitant]
  10. RESTORIL [Concomitant]
  11. CLONAZEPAM [Concomitant]

REACTIONS (5)
  - OROPHARYNGEAL PAIN [None]
  - WHEEZING [None]
  - CHEST PAIN [None]
  - PRURITUS [None]
  - URTICARIA [None]
